FAERS Safety Report 24259882 (Version 1)
Quarter: 2024Q3

REPORT INFORMATION
  Report Type: Spontaneous
  Country: CA (occurrence: CA)
  Receive Date: 20240828
  Receipt Date: 20240828
  Transmission Date: 20241016
  Serious: Yes (Other)
  Sender: ABBVIE
  Company Number: CA-ABBVIE-5895720

PATIENT
  Age: 53 Year
  Sex: Female

DRUGS (2)
  1. BOTOX [Suspect]
     Active Substance: ONABOTULINUMTOXINA
     Indication: Product used for unknown indication
     Dosage: TIME INTERVAL: AS NECESSARY
     Route: 030
  2. VYEPTI [Suspect]
     Active Substance: EPTINEZUMAB\EPTINEZUMAB-JJMR
     Indication: Migraine
     Dosage: SINGLE USE VIAL?FORM STRENGTH: 100 MILLIGRAM
     Route: 041

REACTIONS (6)
  - Bronchitis viral [Recovering/Resolving]
  - Fatigue [Recovering/Resolving]
  - Pneumonia [Recovering/Resolving]
  - Drug ineffective [Recovering/Resolving]
  - Eye disorder [Recovering/Resolving]
  - Drug ineffective [Recovering/Resolving]
